FAERS Safety Report 5217721-3 (Version None)
Quarter: 2007Q1

REPORT INFORMATION
  Report Type: 
  Country: None (occurrence: None)
  Receive Date: 20070124
  Receipt Date: 20070116
  Transmission Date: 20070707
  Serious: Yes (Hospitalization)
  Sender: FDA-Public Use
  Company Number: SE-BAYER-200710242GDS

PATIENT
  Age: 79 Year
  Sex: Male

DRUGS (5)
  1. CIPROFLOXACIN HYDROCHLORIDE [Suspect]
     Indication: URINARY TRACT INFECTION
     Route: 048
     Dates: start: 20060901, end: 20060901
  2. LANACRIST [Suspect]
     Indication: ATRIAL FIBRILLATION
     Dates: end: 20061022
  3. WARAN [Suspect]
     Indication: ATRIAL FIBRILLATION
     Dates: end: 20061022
  4. METOPROLOL SUCCINATE [Concomitant]
     Indication: DRUG USE FOR UNKNOWN INDICATION
  5. COZAAR [Concomitant]
     Indication: DRUG USE FOR UNKNOWN INDICATION

REACTIONS (6)
  - HAEMATOMA [None]
  - NAUSEA [None]
  - POISONING [None]
  - PROTHROMBIN LEVEL DECREASED [None]
  - THROMBOCYTOPENIA [None]
  - VOMITING [None]
